FAERS Safety Report 6183062-3 (Version None)
Quarter: 2009Q2

REPORT INFORMATION
  Report Type: 
  Country: None (occurrence: None)
  Receive Date: 20090507
  Receipt Date: 20090428
  Transmission Date: 20091009
  Serious: Yes (Other)
  Sender: FDA-Public Use
  Company Number: IE-ASTRAZENECA-2009GB00913

PATIENT
  Age: 70 Year
  Sex: Female

DRUGS (2)
  1. ZESTRIL [Suspect]
     Indication: HYPERTENSION
     Route: 048
     Dates: start: 20040119, end: 20090318
  2. NUSEALS ASPIRIN [Concomitant]

REACTIONS (1)
  - IMMUNOGLOBULINS INCREASED [None]
